FAERS Safety Report 19095770 (Version 2)
Quarter: 2021Q2

REPORT INFORMATION
  Report Type: Spontaneous
  Country: US (occurrence: US)
  Receive Date: 20210406
  Receipt Date: 20210421
  Transmission Date: 20210717
  Serious: Yes (Hospitalization)
  Sender: FDA-Public Use
  Company Number: US-SUN PHARMACEUTICAL INDUSTRIES LTD-2021R1-289854

PATIENT
  Age: 55 Year
  Sex: Male
  Weight: 108.9 kg

DRUGS (4)
  1. ACETAMINOPHEN AND CODEINE [Suspect]
     Active Substance: ACETAMINOPHEN\CODEINE PHOSPHATE
     Indication: PRODUCT USED FOR UNKNOWN INDICATION
     Dosage: UNK
     Route: 065
  2. LORAZEPAM. [Suspect]
     Active Substance: LORAZEPAM
     Indication: PRODUCT USED FOR UNKNOWN INDICATION
     Dosage: 1 MILLIGRAM/ 26 TABLETS
     Route: 065
  3. TRAMADOL. [Suspect]
     Active Substance: TRAMADOL
     Indication: PRODUCT USED FOR UNKNOWN INDICATION
     Dosage: 5?15 TABLETS
     Route: 065
  4. ALPRAZOLAM. [Suspect]
     Active Substance: ALPRAZOLAM
     Indication: PRODUCT USED FOR UNKNOWN INDICATION
     Dosage: 2 MILLIGRAM/ 30 TABLETS
     Route: 065

REACTIONS (7)
  - Overdose [Unknown]
  - Blood potassium abnormal [Recovering/Resolving]
  - Hypoglycaemia [Recovering/Resolving]
  - Somnolence [Recovering/Resolving]
  - PCO2 increased [Recovering/Resolving]
  - Hypertension [Recovering/Resolving]
  - Blood bicarbonate abnormal [Recovering/Resolving]
